FAERS Safety Report 5016040-8 (Version None)
Quarter: 2006Q2

REPORT INFORMATION
  Report Type: 
  Country: None (occurrence: None)
  Receive Date: 20060531
  Receipt Date: 20060531
  Transmission Date: 20061013
  Serious: No
  Sender: FDA-Public Use
  Company Number: None

PATIENT
  Age: 46 Year
  Sex: Female
  Weight: 50.8029 kg

DRUGS (1)
  1. CIPROFLOXACIN [Suspect]
     Indication: URINARY TRACT INFECTION
     Dosage: 250 MG 2 X DAY PO
     Route: 048
     Dates: start: 20050107, end: 20050112

REACTIONS (18)
  - ABDOMINAL PAIN UPPER [None]
  - CORNEAL DISORDER [None]
  - DYSKINESIA [None]
  - EAR DISCOMFORT [None]
  - EMOTIONAL DISTRESS [None]
  - HEADACHE [None]
  - HYPOAESTHESIA [None]
  - MUSCLE CONTRACTIONS INVOLUNTARY [None]
  - NEUROPATHY PERIPHERAL [None]
  - NIGHTMARE [None]
  - PAIN IN EXTREMITY [None]
  - PARAESTHESIA [None]
  - RASH PAPULAR [None]
  - SKIN BURNING SENSATION [None]
  - TENDON DISORDER [None]
  - TINNITUS [None]
  - VISION BLURRED [None]
  - VITREOUS FLOATERS [None]
